FAERS Safety Report 14930712 (Version 4)
Quarter: 2018Q2

REPORT INFORMATION
  Report Type: Spontaneous
  Country: US (occurrence: US)
  Receive Date: 20180523
  Receipt Date: 20180626
  Transmission Date: 20180711
  Serious: Yes (Other)
  Sender: FDA-Public Use
  Company Number: US-AMGEN-USASP2018068251

PATIENT
  Age: 60 Year
  Sex: Female
  Weight: 101.1 kg

DRUGS (23)
  1. ELIQUIS [Concomitant]
     Active Substance: APIXABAN
     Dosage: 5 MG, BID
     Route: 048
  2. REQUIP [Concomitant]
     Active Substance: ROPINIROLE HYDROCHLORIDE
     Dosage: 3 MG, TID
     Route: 048
  3. SINGULAIR [Concomitant]
     Active Substance: MONTELUKAST SODIUM
     Dosage: 10 MG, QD
     Route: 048
  4. CELEXA [Concomitant]
     Active Substance: CITALOPRAM HYDROBROMIDE
     Dosage: 40 MG, QD
     Route: 048
  5. GABAPENTIN. [Concomitant]
     Active Substance: GABAPENTIN
     Dosage: 600 MG, BID
     Route: 048
  6. LISINOPRIL. [Concomitant]
     Active Substance: LISINOPRIL
     Dosage: 5 MG, QD
     Route: 048
  7. IMIQUIMOD. [Concomitant]
     Active Substance: IMIQUIMOD
     Dosage: 5 %, 3 TIMES/WK FOR 16 WEEKS
     Route: 061
  8. PRAVASTATIN. [Concomitant]
     Active Substance: PRAVASTATIN
     Dosage: 20 MG, QHS
     Route: 048
  9. ROBAXIN-750 [Concomitant]
     Dosage: 750 MG, BID
     Route: 048
  10. ENBREL [Suspect]
     Active Substance: ETANERCEPT
     Indication: RHEUMATOID ARTHRITIS
     Dosage: 50 MG, QWK
     Route: 058
     Dates: start: 2013
  11. GLUCOPHAGE [Concomitant]
     Active Substance: METFORMIN HYDROCHLORIDE
     Dosage: 1000 MG, BID
     Route: 048
  12. LEVEMIR [Concomitant]
     Active Substance: INSULIN DETEMIR
     Dosage: 100 UNITS/ML, 17 UNIT, QHS
     Route: 058
  13. CARVEDILOL. [Concomitant]
     Active Substance: CARVEDILOL
     Dosage: 12.5 MG, BID WITH MEALS
     Route: 048
  14. LEVOTHYROXINE. [Concomitant]
     Active Substance: LEVOTHYROXINE
     Dosage: 0.1 MG, QD
     Route: 048
  15. OXYBUTYNIN. [Concomitant]
     Active Substance: OXYBUTYNIN CHLORIDE
     Dosage: 5 MG, AS NECESSARY, 5 MG, TID
     Route: 048
  16. METHOTREXATE. [Concomitant]
     Active Substance: METHOTREXATE
     Dosage: 25 MG, QWK
     Route: 058
  17. ADVAIR HFA [Concomitant]
     Active Substance: FLUTICASONE PROPIONATE\SALMETEROL XINAFOATE
     Dosage: 250 MCG-50 MCG, BID
  18. ALBUTEROL. [Concomitant]
     Active Substance: ALBUTEROL
     Dosage: 2.5 MG, Q6H, 2 PUFFS, EVERY 4 TP 6 HOURS
  19. FOLIC ACID. [Concomitant]
     Active Substance: FOLIC ACID
     Dosage: 1 MG, QD
     Route: 048
  20. GLYBURIDE. [Concomitant]
     Active Substance: GLYBURIDE
     Dosage: 5 MG, UNK, 10 MG, QD
     Route: 048
  21. ISOSORBIDE MONONITRATE. [Concomitant]
     Active Substance: ISOSORBIDE MONONITRATE
     Dosage: 30 MG, UNK, 15 MG, QD
     Route: 048
  22. OMEPRAZOLE. [Concomitant]
     Active Substance: OMEPRAZOLE
     Dosage: 20 MG, QD
  23. SITAGLIPTIN [Concomitant]
     Active Substance: SITAGLIPTIN
     Dosage: 10 MG, QD

REACTIONS (25)
  - Deafness [Unknown]
  - Asthma [Recovered/Resolved]
  - Back pain [Unknown]
  - Chronic obstructive pulmonary disease [Recovered/Resolved]
  - Dry mouth [Unknown]
  - Dry eye [Unknown]
  - Pollakiuria [Unknown]
  - Arthralgia [Unknown]
  - Muscular weakness [Unknown]
  - Bronchitis [Unknown]
  - Lymphadenopathy [Unknown]
  - Diabetes mellitus [Not Recovered/Not Resolved]
  - Sensitivity to weather change [Unknown]
  - Weight abnormal [Unknown]
  - Joint swelling [Unknown]
  - Temperature intolerance [Unknown]
  - Injection site pruritus [Recovered/Resolved]
  - Tinnitus [Unknown]
  - Headache [Unknown]
  - Myalgia [Unknown]
  - Joint warmth [Unknown]
  - Injection site haemorrhage [Unknown]
  - Pain in extremity [Unknown]
  - Nervousness [Unknown]
  - Sinus disorder [Unknown]

NARRATIVE: CASE EVENT DATE: 2018
